FAERS Safety Report 15433368 (Version 1)
Quarter: 2018Q3

REPORT INFORMATION
  Report Type: Spontaneous
  Country: US (occurrence: US)
  Receive Date: 20180927
  Receipt Date: 20180927
  Transmission Date: 20181010
  Serious: Yes (Hospitalization, Other)
  Sender: FDA-Public Use
  Company Number: US-ASTRAZENECA-2018SF20943

PATIENT
  Sex: Male

DRUGS (5)
  1. ALFUZOSIN [Concomitant]
     Active Substance: ALFUZOSIN
  2. ATENOLOL. [Suspect]
     Active Substance: ATENOLOL
     Route: 065
  3. SYMBICORT [Suspect]
     Active Substance: BUDESONIDE\FORMOTEROL FUMARATE DIHYDRATE
     Dosage: TWO TIMES A DAY
     Route: 055
     Dates: end: 20180815
  4. SINGULAIR [Concomitant]
     Active Substance: MONTELUKAST SODIUM
  5. ROSUVASTATIN. [Suspect]
     Active Substance: ROSUVASTATIN
     Route: 048

REACTIONS (2)
  - Aspergillus infection [Unknown]
  - Chronic obstructive pulmonary disease [Unknown]
